FAERS Safety Report 13187807 (Version 1)
Quarter: 2017Q1

REPORT INFORMATION
  Report Type: Spontaneous
  Country: US (occurrence: US)
  Receive Date: 20170206
  Receipt Date: 20170206
  Transmission Date: 20170428
  Serious: Yes (Other)
  Sender: FDA-Public Use
  Company Number: US-CELGENEUS-USA-2015116470

PATIENT

DRUGS (2)
  1. AZACITIDINE INJECTABLE [Suspect]
     Active Substance: AZACITIDINE
     Indication: MYELODYSPLASTIC SYNDROME
     Dosage: 75 MILLIGRAM/SQ. METER
     Route: 065
  2. PRACINOSTAT [Suspect]
     Active Substance: PRACINOSTAT
     Indication: MYELODYSPLASTIC SYNDROME
     Dosage: 60 MILLIGRAM
     Route: 048

REACTIONS (21)
  - Thrombocytopenia [Unknown]
  - Vomiting [Unknown]
  - Dizziness [Unknown]
  - Pneumonia [Unknown]
  - Decreased appetite [Unknown]
  - Cough [Unknown]
  - Myalgia [Unknown]
  - Febrile neutropenia [Unknown]
  - Neutropenia [Unknown]
  - Constipation [Unknown]
  - Myelodysplastic syndrome [Unknown]
  - Dehydration [Unknown]
  - Electrocardiogram QT prolonged [Unknown]
  - Fatigue [Unknown]
  - Diarrhoea [Unknown]
  - Headache [Unknown]
  - Dyspnoea [Unknown]
  - Anaemia [Unknown]
  - Nausea [Unknown]
  - Pyrexia [Unknown]
  - Oedema peripheral [Unknown]
